FAERS Safety Report 8293518-5 (Version None)
Quarter: 2012Q2

REPORT INFORMATION
  Report Type: 
  Country: None (occurrence: None)
  Receive Date: 20120418
  Receipt Date: 20120403
  Transmission Date: 20120825
  Serious: Yes (Hospitalization, Other)
  Sender: FDA-Public Use
  Company Number: AR-AMGEN-ARGSP2012015430

PATIENT
  Age: 71 Year
  Sex: Female

DRUGS (4)
  1. INSULIN [Concomitant]
     Dosage: UNK
  2. LOSACOR [Concomitant]
     Dosage: UNK
  3. ENBREL [Suspect]
     Indication: RHEUMATOID ARTHRITIS
     Dosage: 25 MG, 2X/WEEK
     Route: 058
     Dates: start: 20060115, end: 20101001
  4. PREDNISONE [Concomitant]
     Dosage: UNK

REACTIONS (2)
  - ECCHYMOSIS [None]
  - SKIN ULCER [None]
